FAERS Safety Report 19034811 (Version 4)
Quarter: 2021Q2

REPORT INFORMATION
  Report Type: Spontaneous
  Country: US (occurrence: US)
  Receive Date: 20210320
  Receipt Date: 20210416
  Transmission Date: 20210717
  Serious: No
  Sender: FDA-Public Use
  Company Number: US-SA-2021SA081814

PATIENT
  Age: 59 Year
  Sex: Female

DRUGS (1)
  1. LANTUS [Suspect]
     Active Substance: INSULIN GLARGINE
     Indication: TYPE 2 DIABETES MELLITUS
     Dosage: 60 IU, QD

REACTIONS (4)
  - Dizziness [Recovered/Resolved]
  - Malaise [Recovered/Resolved]
  - Blood glucose increased [Recovered/Resolved]
  - Injury associated with device [Unknown]

NARRATIVE: CASE EVENT DATE: 20210308
